FAERS Safety Report 7946855-5 (Version None)
Quarter: 2011Q4

REPORT INFORMATION
  Report Type: 
  Country: None (occurrence: None)
  Receive Date: 20111129
  Receipt Date: 20111121
  Transmission Date: 20120403
  Serious: Yes (Hospitalization)
  Sender: FDA-Public Use
  Company Number: PHHO2011FR15982

PATIENT
  Sex: Male
  Weight: 83 kg

DRUGS (2)
  1. TIOTROPIUM [Concomitant]
  2. QAB149 [Suspect]
     Indication: CHRONIC OBSTRUCTIVE PULMONARY DISEASE
     Dosage: 150 UG, QD
     Dates: start: 20110512, end: 20110912

REACTIONS (2)
  - DRUG INEFFECTIVE [None]
  - RESPIRATORY FAILURE [None]
